FAERS Safety Report 6537103-1 (Version None)
Quarter: 2010Q1

REPORT INFORMATION
  Report Type: 
  Country: None (occurrence: None)
  Receive Date: 20100114
  Receipt Date: 20100107
  Transmission Date: 20100710
  Serious: Yes (Other)
  Sender: FDA-Public Use
  Company Number: JP-BAYER-201010117BYL

PATIENT
  Age: 74 Year
  Sex: Female
  Weight: 44 kg

DRUGS (8)
  1. NEXAVAR [Suspect]
     Indication: HEPATIC NEOPLASM MALIGNANT
     Dosage: UNIT DOSE: 200 MG
     Route: 048
     Dates: start: 20090811, end: 20091013
  2. URSO 250 [Concomitant]
     Dosage: SINCE BEFORE ADMINISTRATION
     Route: 048
  3. GASMOTIN [Concomitant]
     Dosage: SINCE BEFORE ADMINISTRATION
     Route: 048
  4. DOGMATYL [Concomitant]
     Dosage: SINCE BEFORE ADMINISTRATION
     Route: 048
  5. AMOBAN [Concomitant]
     Dosage: SINCE BEFORE ADMINISTRATION
     Route: 048
  6. LIVACT [Concomitant]
     Dosage: SINCE BEFORE ADMINISTRATION
     Route: 048
  7. LOXONIN [Concomitant]
     Indication: BACK PAIN
     Route: 048
     Dates: start: 20091010, end: 20091110
  8. MUCOSTA [Concomitant]
     Indication: PROPHYLAXIS
     Route: 048
     Dates: start: 20091013

REACTIONS (5)
  - ALOPECIA [None]
  - LIVER DISORDER [None]
  - PALMAR-PLANTAR ERYTHRODYSAESTHESIA SYNDROME [None]
  - PLATELET COUNT DECREASED [None]
  - RADIATION PNEUMONITIS [None]
